FAERS Safety Report 14803555 (Version 1)
Quarter: 2018Q2

REPORT INFORMATION
  Report Type: Spontaneous
  Country: FR (occurrence: FR)
  Receive Date: 20180425
  Receipt Date: 20180425
  Transmission Date: 20180711
  Serious: Yes (Hospitalization)
  Sender: FDA-Public Use
  Company Number: FR-SUN PHARMACEUTICAL INDUSTRIES LTD-2018RR-170894

PATIENT
  Age: 65 Year
  Sex: Male

DRUGS (5)
  1. GENTAMICINE [Suspect]
     Active Substance: GENTAMICIN
     Indication: INFECTION
     Dosage: IN TOTAL
     Route: 042
     Dates: start: 20180206, end: 20180206
  2. RIFADINE [Suspect]
     Active Substance: RIFAMPIN
     Indication: INFECTION
     Dosage: NON RENSEIGNEE ()
     Route: 048
     Dates: start: 20180227, end: 20180305
  3. PANTOPRAZOL [Suspect]
     Active Substance: PANTOPRAZOLE SODIUM
     Indication: PRODUCT USED FOR UNKNOWN INDICATION
     Dosage: 0-0-1
     Route: 048
     Dates: start: 20180307, end: 20180312
  4. RIFAMPICINE [Suspect]
     Active Substance: RIFAMPIN
     Indication: INFECTION
     Dosage: 1200 MG, UNK
     Route: 042
     Dates: start: 20180213, end: 20180227
  5. VANCOMYCINE [Suspect]
     Active Substance: VANCOMYCIN
     Indication: INFECTION
     Dosage: 3 G, UNK
     Route: 042
     Dates: start: 20180206, end: 20180305

REACTIONS (1)
  - Drug reaction with eosinophilia and systemic symptoms [Recovered/Resolved]

NARRATIVE: CASE EVENT DATE: 20180312
